FAERS Safety Report 11138016 (Version 1)
Quarter: 2015Q2

REPORT INFORMATION
  Report Type: Spontaneous
  Country: US (occurrence: US)
  Receive Date: 20150526
  Receipt Date: 20150526
  Transmission Date: 20150821
  Serious: No
  Sender: FDA-Public Use
  Company Number: US-MALLINCKRODT-T201500036

PATIENT
  Age: 55 Year
  Sex: Female

DRUGS (1)
  1. H.P. ACTHAR [Suspect]
     Active Substance: CORTICOTROPIN
     Indication: GLOMERULONEPHRITIS MEMBRANOPROLIFERATIVE
     Dosage: 40 U, BIWEEKLY
     Route: 058
     Dates: start: 20141128

REACTIONS (4)
  - Influenza like illness [Not Recovered/Not Resolved]
  - Vascular headache [Unknown]
  - Sinusitis [None]
  - Blood pressure increased [Unknown]

NARRATIVE: CASE EVENT DATE: 20150102
